FAERS Safety Report 21784724 (Version 1)
Quarter: 2022Q4

REPORT INFORMATION
  Report Type: Spontaneous
  Country: US (occurrence: None)
  Receive Date: 20221226
  Receipt Date: 20221226
  Transmission Date: 20230113
  Serious: No
  Sender: FDA-Public Use
  Company Number: None

PATIENT
  Age: 79 Year
  Sex: Female

DRUGS (9)
  1. IMATINIB [Suspect]
     Active Substance: IMATINIB
     Indication: Chronic myeloid leukaemia
     Dosage: FREQUENCY : DAILY;?
     Route: 048
     Dates: start: 20210810
  2. TYLENOL [Concomitant]
  3. LYRICA [Concomitant]
  4. AMLODIPINE [Concomitant]
  5. DONEPEZIL [Concomitant]
     Active Substance: DONEPEZIL
  6. ESCITALOPRAM [Concomitant]
  7. LORAZEPAM [Concomitant]
  8. TRAZODONE [Concomitant]
  9. XARELTO [Concomitant]

REACTIONS (1)
  - Gastrointestinal haemorrhage [None]

NARRATIVE: CASE EVENT DATE: 20221113
